FAERS Safety Report 8026226-6 (Version None)
Quarter: 2012Q1

REPORT INFORMATION
  Report Type: 
  Country: None (occurrence: None)
  Receive Date: 20120105
  Receipt Date: 20110225
  Transmission Date: 20120608
  Serious: No
  Sender: FDA-Public Use
  Company Number: US-ABBOTT-11P-163-0708306-00

PATIENT
  Sex: Female
  Weight: 40.406 kg

DRUGS (3)
  1. TOPROL-XL [Concomitant]
     Indication: ARRHYTHMIA
     Dosage: 1/2 TABLET, 1 IN 1 DAY
     Route: 048
  2. VITAMIN D [Concomitant]
     Indication: VITAMIN SUPPLEMENTATION
     Route: 048
  3. SYNTHROID [Suspect]
     Indication: HYPOTHYROIDISM
     Route: 048
     Dates: start: 20110101

REACTIONS (9)
  - FEELING ABNORMAL [None]
  - HEADACHE [None]
  - FATIGUE [None]
  - DEPRESSION [None]
  - TREMOR [None]
  - HYPOAESTHESIA [None]
  - BLOOD PRESSURE ABNORMAL [None]
  - BLOOD THYROID STIMULATING HORMONE INCREASED [None]
  - CHEST PAIN [None]
